FAERS Safety Report 15663497 (Version 1)
Quarter: 2018Q4

REPORT INFORMATION
  Report Type: Spontaneous
  Country: PK (occurrence: PK)
  Receive Date: 20181128
  Receipt Date: 20181128
  Transmission Date: 20190205
  Serious: Yes (Hospitalization, Other)
  Sender: FDA-Public Use
  Company Number: PK-SUN PHARMACEUTICAL INDUSTRIES LTD-2018RR-192105

PATIENT
  Age: 4 Year
  Sex: Female

DRUGS (5)
  1. ETOPOSIDE. [Suspect]
     Active Substance: ETOPOSIDE
     Indication: NEPHROBLASTOMA
     Dosage: AS SECOND LINE OF CHEMOTHERAPY
     Route: 065
  2. IFOSPHAMIDE [Suspect]
     Active Substance: IFOSFAMIDE
     Indication: NEPHROBLASTOMA
     Dosage: AS SECOND LINE OF CHEMOTHERAPY
     Route: 065
  3. RISPERIDONE. [Suspect]
     Active Substance: RISPERIDONE
     Indication: DECREASED APPETITE
  4. CARBOPLATIN. [Suspect]
     Active Substance: CARBOPLATIN
     Indication: NEPHROBLASTOMA
     Dosage: AS SECOND LINE OF CHEMOTHERAPY
     Route: 065
  5. RISPERIDONE. [Suspect]
     Active Substance: RISPERIDONE
     Indication: DEPRESSION
     Dosage: 0.25 MILLIGRAM, DAILY
     Route: 048
     Dates: start: 201610, end: 201610

REACTIONS (4)
  - Mucosal inflammation [Unknown]
  - Depression [Unknown]
  - Extrapyramidal disorder [Recovered/Resolved]
  - Febrile neutropenia [Unknown]
